FAERS Safety Report 7216012-9 (Version None)
Quarter: 2011Q1

REPORT INFORMATION
  Report Type: 
  Country: None (occurrence: None)
  Receive Date: 20110107
  Receipt Date: 20101225
  Transmission Date: 20110831
  Serious: Yes (Other)
  Sender: FDA-Public Use
  Company Number: PHHY2010GB88406

PATIENT
  Age: 21 Year
  Sex: Female

DRUGS (2)
  1. PARACETAMOL [Suspect]
     Indication: ARTHRALGIA
     Dosage: 3 G, UNK
  2. CO-CODAMOL [Suspect]
     Indication: ARTHRALGIA

REACTIONS (21)
  - LOWER RESPIRATORY TRACT INFECTION [None]
  - HEADACHE [None]
  - NEUTROPHILIA [None]
  - MEAN CELL VOLUME INCREASED [None]
  - HAEMOPHILUS TEST POSITIVE [None]
  - CAESAREAN SECTION [None]
  - DRUG EXPOSURE DURING PREGNANCY [None]
  - WHEEZING [None]
  - VOMITING [None]
  - BACK PAIN [None]
  - METABOLIC ACIDOSIS [None]
  - MACROCYTOSIS [None]
  - KETONURIA [None]
  - BLOOD ALKALINE PHOSPHATASE INCREASED [None]
  - GAMMA-GLUTAMYLTRANSFERASE INCREASED [None]
  - DYSPNOEA [None]
  - URINARY TRACT INFECTION [None]
  - DECREASED APPETITE [None]
  - RESPIRATORY RATE INCREASED [None]
  - MUSCULOSKELETAL CHEST PAIN [None]
  - ANISOCYTOSIS [None]
